FAERS Safety Report 15133828 (Version 1)
Quarter: 2018Q3

REPORT INFORMATION
  Report Type: Spontaneous
  Country: US (occurrence: US)
  Receive Date: 20180615
  Receipt Date: 20180615
  Transmission Date: 20181010
  Serious: No
  Sender: FDA-Public Use
  Company Number: None

PATIENT
  Age: 33 Year
  Sex: Female
  Weight: 65.77 kg

DRUGS (2)
  1. BUPRENORPHINE/NALOXONE 8/2MG [Suspect]
     Active Substance: BUPRENORPHINE HYDROCHLORIDE\NALOXONE HYDROCHLORIDE
     Indication: DRUG DEPENDENCE
     Dosage: ?          OTHER DOSE:8/2MG;OTHER FREQUENCY:1 AM 1/2 PM 1/2 HS;?
     Route: 060
     Dates: start: 20180523
  2. ZUBSOLV [Suspect]
     Active Substance: BUPRENORPHINE HYDROCHLORIDE\NALOXONE HYDROCHLORIDE
     Indication: DRUG DEPENDENCE
     Dosage: ?          OTHER DOSE:ZUBSOLV 8.6/2.1MG;OTHER FREQUENCY:1 AM 1/2 PM 1/2 HS;?
     Route: 060
     Dates: start: 20180315, end: 20180523

REACTIONS (4)
  - Product solubility abnormal [None]
  - Retching [None]
  - Product use complaint [None]
  - Drug intolerance [None]
